FAERS Safety Report 8495186-6 (Version None)
Quarter: 2012Q3

REPORT INFORMATION
  Report Type: 
  Country: None (occurrence: None)
  Receive Date: 20120702
  Receipt Date: 20120702
  Transmission Date: 20120928
  Serious: Yes (Other)
  Sender: FDA-Public Use
  Company Number: None

PATIENT
  Sex: Male

DRUGS (8)
  1. NEXIUM [Concomitant]
  2. MIRAPEX [Concomitant]
  3. RENEXIS [Concomitant]
  4. BABY ASPRIN [Concomitant]
  5. METOPROLOL TARTRATE [Concomitant]
  6. CHLORDHALIDONE [Concomitant]
  7. SIMVASTATIN [Suspect]
     Indication: BLOOD CHOLESTEROL INCREASED
     Dosage: 40MG ONCE AT NIGHT PO
     Route: 048
  8. LISINOPRIL [Concomitant]

REACTIONS (9)
  - ARTHRALGIA [None]
  - FATIGUE [None]
  - ASTHENIA [None]
  - CHROMATURIA [None]
  - DYSURIA [None]
  - MYALGIA [None]
  - CONTUSION [None]
  - DYSPNOEA [None]
  - BACK PAIN [None]
